FAERS Safety Report 9391277 (Version 1)
Quarter: 2013Q3

REPORT INFORMATION
  Report Type: Spontaneous
  Country: CA (occurrence: CA)
  Receive Date: 20130709
  Receipt Date: 20130709
  Transmission Date: 20140515
  Serious: Yes (Death, Hospitalization)
  Sender: FDA-Public Use
  Company Number: CA-B.I. PHARMACEUTICALS,INC./RIDGEFIELD-2013-CN-01197CN

PATIENT
  Age: 72 Year
  Sex: Female

DRUGS (1)
  1. PRADAX [Suspect]
     Indication: ATRIAL FIBRILLATION
     Dosage: 300 MG
     Route: 048
     Dates: start: 2010

REACTIONS (4)
  - Pneumonia aspiration [Fatal]
  - Bacterial sepsis [Fatal]
  - Acute coronary syndrome [Unknown]
  - Lower gastrointestinal haemorrhage [Unknown]
